FAERS Safety Report 6874896-8 (Version None)
Quarter: 2010Q3

REPORT INFORMATION
  Report Type: 
  Country: None (occurrence: None)
  Receive Date: 20100723
  Receipt Date: 20100714
  Transmission Date: 20110219
  Serious: Yes (Hospitalization)
  Sender: FDA-Public Use
  Company Number: 7011111

PATIENT
  Age: 60 Year
  Sex: Female

DRUGS (1)
  1. REBIF [Suspect]
     Indication: SECONDARY PROGRESSIVE MULTIPLE SCLEROSIS
     Dosage: 44 MCG
     Dates: start: 20010731, end: 20100701

REACTIONS (7)
  - AGITATION [None]
  - CONTUSION [None]
  - HALLUCINATION, VISUAL [None]
  - HYPONATRAEMIA [None]
  - MALAISE [None]
  - SEPSIS [None]
  - URINARY TRACT INFECTION [None]
